FAERS Safety Report 5469378-4 (Version None)
Quarter: 2007Q3

REPORT INFORMATION
  Report Type: 
  Country: None (occurrence: None)
  Receive Date: 20070927
  Receipt Date: 20070921
  Transmission Date: 20080115
  Serious: Yes (Congenital Anomaly, Other)
  Sender: FDA-Public Use
  Company Number: BW-BRISTOL-MYERS SQUIBB COMPANY-13913918

PATIENT
  Sex: Female

DRUGS (1)
  1. EFAVIRENZ [Suspect]
     Indication: HIV INFECTION

REACTIONS (6)
  - ABORTION INDUCED [None]
  - ABORTION SPONTANEOUS [None]
  - LIVE BIRTH [None]
  - PREGNANCY [None]
  - PREMATURE BABY [None]
  - SKELETON DYSPLASIA [None]
